FAERS Safety Report 23116731 (Version 1)
Quarter: 2023Q4

REPORT INFORMATION
  Report Type: Spontaneous
  Country: CN (occurrence: CN)
  Receive Date: 20231027
  Receipt Date: 20231027
  Transmission Date: 20240110
  Serious: Yes (Life-Threatening)
  Sender: FDA-Public Use
  Company Number: CN-JNJFOC-20231064972

PATIENT

DRUGS (1)
  1. DARZALEX [Suspect]
     Active Substance: DARATUMUMAB
     Indication: Product used for unknown indication
     Dosage: 400 MG/20ML/BOTTLE
     Route: 065

REACTIONS (3)
  - Infusion related reaction [Recovered/Resolved]
  - Shock [Recovered/Resolved]
  - Blood pressure decreased [Recovered/Resolved]
